FAERS Safety Report 14529035 (Version 1)
Quarter: 2018Q1

REPORT INFORMATION
  Report Type: Spontaneous
  Country: US (occurrence: US)
  Receive Date: 20180213
  Receipt Date: 20180213
  Transmission Date: 20180509
  Serious: Yes (Hospitalization)
  Sender: FDA-Public Use
  Company Number: None

PATIENT
  Age: 72 Year
  Sex: Female

DRUGS (1)
  1. LETAIRIS [Suspect]
     Active Substance: AMBRISENTAN
     Indication: PULMONARY ARTERIAL HYPERTENSION
     Route: 048
     Dates: start: 201712

REACTIONS (7)
  - Pneumonia [None]
  - Hypotension [None]
  - Fall [None]
  - Fluid overload [None]
  - Tachycardia [None]
  - Diarrhoea [None]
  - Supraventricular tachycardia [None]

NARRATIVE: CASE EVENT DATE: 20180120
